FAERS Safety Report 25728966 (Version 2)
Quarter: 2025Q4

REPORT INFORMATION
  Report Type: Spontaneous
  Country: JP (occurrence: JP)
  Receive Date: 20250826
  Receipt Date: 20251005
  Transmission Date: 20260118
  Serious: No
  Sender: AMGEN
  Company Number: JP-KYOWAKIRIN-2025KK016477

PATIENT

DRUGS (2)
  1. DARBEPOETIN ALFA [Suspect]
     Active Substance: DARBEPOETIN ALFA
     Indication: Product used for unknown indication
     Dosage: 30 MICROGRAM, Q2WK
     Route: 065
     Dates: start: 202506
  2. DAPRODUSTAT [Suspect]
     Active Substance: DAPRODUSTAT
     Indication: Nephrogenic anaemia
     Dosage: 4 MILLIGRAM
     Route: 048

REACTIONS (1)
  - No adverse event [Unknown]
